FAERS Safety Report 19640733 (Version 4)
Quarter: 2021Q3

REPORT INFORMATION
  Report Type: Report from Study
  Country: None (occurrence: US)
  Receive Date: 20210729
  Receipt Date: 20210831
  Transmission Date: 20211014
  Serious: Yes (Death, Life-Threatening, Hospitalization)
  Sender: FDA-Public Use
  Company Number: US-ABBVIE-21P-163-4012365-00

PATIENT
  Age: 81 Year
  Sex: Male
  Weight: 92.1 kg

DRUGS (5)
  1. ALLOPURINOL. [Concomitant]
     Active Substance: ALLOPURINOL
     Indication: PROPHYLAXIS
     Route: 048
     Dates: start: 20210720, end: 20210722
  2. SODIUM CHLORIDE. [Concomitant]
     Active Substance: SODIUM CHLORIDE
     Indication: PROPHYLAXIS
     Dosage: 75ML/H
     Route: 048
     Dates: start: 20210720, end: 20210723
  3. VENETOCLAX. [Suspect]
     Active Substance: VENETOCLAX
     Indication: ACUTE MYELOID LEUKAEMIA
     Route: 048
     Dates: start: 20210723, end: 20210723
  4. LEMZOPARLIMAB. [Suspect]
     Active Substance: LEMZOPARLIMAB
     Indication: ACUTE MYELOID LEUKAEMIA
     Dosage: ON DAYS 1, 8, 15, AND 22 OF A 28?DAY CYCLE
     Route: 042
     Dates: start: 20210723, end: 20210723
  5. AZACITIDINE. [Suspect]
     Active Substance: AZACITIDINE
     Indication: ACUTE MYELOID LEUKAEMIA
     Dosage: 7 DAYS WITHIN THE FIRST 9 CALENDAR DAYS OF EACH 28?DAY CYCLE
     Route: 058
     Dates: start: 20210723, end: 20210723

REACTIONS (1)
  - Tumour lysis syndrome [Fatal]

NARRATIVE: CASE EVENT DATE: 20210723
